FAERS Safety Report 16058943 (Version 2)
Quarter: 2019Q2

REPORT INFORMATION
  Report Type: Spontaneous
  Country: US (occurrence: US)
  Receive Date: 20190311
  Receipt Date: 20190403
  Transmission Date: 20190711
  Serious: Yes (Hospitalization)
  Sender: FDA-Public Use
  Company Number: PHHY2018US014558

PATIENT
  Age: 20 Year
  Sex: Female

DRUGS (1)
  1. PROGESTERONE. [Suspect]
     Active Substance: PROGESTERONE
     Indication: SHORTENED CERVIX
     Dosage: UNK
     Route: 067

REACTIONS (2)
  - Maternal exposure during pregnancy [Unknown]
  - Autoimmune dermatitis [Recovered/Resolved]
